FAERS Safety Report 8485798-8 (Version None)
Quarter: 2012Q3

REPORT INFORMATION
  Report Type: 
  Country: None (occurrence: None)
  Receive Date: 20120703
  Receipt Date: 20120621
  Transmission Date: 20120928
  Serious: Yes (Other)
  Sender: FDA-Public Use
  Company Number: GB-MYLANLABS-2012S1012749

PATIENT
  Age: 63 Year
  Sex: Male
  Weight: 100 kg

DRUGS (19)
  1. OMEPRAZOLE [Suspect]
     Indication: PRODUCT USED FOR UNKNOWN INDICATION
     Dates: start: 20120522
  2. LISINOPRIL [Concomitant]
     Dates: start: 20120326, end: 20120423
  3. LISINOPRIL [Concomitant]
     Dates: start: 20120514, end: 20120611
  4. LISINOPRIL [Concomitant]
     Indication: PRODUCT USED FOR UNKNOWN INDICATION
     Dates: start: 20120215, end: 20120314
  5. SYMBICORT [Concomitant]
     Dates: start: 20120514, end: 20120515
  6. BECLOMETHASONE DIPROPIONATE [Concomitant]
     Indication: PRODUCT USED FOR UNKNOWN INDICATION
     Dates: start: 20120326
  7. NICOTINE [Concomitant]
     Indication: PRODUCT USED FOR UNKNOWN INDICATION
     Dates: start: 20120514, end: 20120521
  8. PHENYTOIN SODIUM [Concomitant]
     Indication: PRODUCT USED FOR UNKNOWN INDICATION
     Dates: start: 20120321
  9. SILDENAFIL [Concomitant]
     Dates: start: 20120514, end: 20120611
  10. VARENICLINE [Concomitant]
     Indication: PRODUCT USED FOR UNKNOWN INDICATION
     Dates: start: 20120522, end: 20120523
  11. FUROSEMIDE [Concomitant]
     Indication: PRODUCT USED FOR UNKNOWN INDICATION
     Dates: start: 20120321, end: 20120418
  12. SIMVASTATIN [Concomitant]
     Indication: PRODUCT USED FOR UNKNOWN INDICATION
     Dates: start: 20120321, end: 20120418
  13. BUDESONIDE [Concomitant]
     Indication: PRODUCT USED FOR UNKNOWN INDICATION
     Dates: start: 20120321, end: 20120418
  14. BUDESONIDE [Concomitant]
     Dates: start: 20120514, end: 20120611
  15. FUROSEMIDE [Concomitant]
     Dates: start: 20120514, end: 20120611
  16. SYMBICORT [Concomitant]
     Indication: PRODUCT USED FOR UNKNOWN INDICATION
     Dates: start: 20120321, end: 20120322
  17. RANITIDINE [Concomitant]
     Indication: PRODUCT USED FOR UNKNOWN INDICATION
     Dates: start: 20120612
  18. SILDENAFIL [Concomitant]
     Indication: PRODUCT USED FOR UNKNOWN INDICATION
     Dates: start: 20120321, end: 20120418
  19. SIMVASTATIN [Concomitant]
     Dates: start: 20120514, end: 20120611

REACTIONS (3)
  - RASH MACULAR [None]
  - EYE SWELLING [None]
  - OEDEMA MOUTH [None]
